FAERS Safety Report 13776569 (Version 1)
Quarter: 2017Q3

REPORT INFORMATION
  Report Type: Spontaneous
  Country: FR (occurrence: FR)
  Receive Date: 20170721
  Receipt Date: 20170721
  Transmission Date: 20171127
  Serious: Yes (Other)
  Sender: FDA-Public Use
  Company Number: FR-BAYER-2017-134721

PATIENT
  Age: 33 Year
  Sex: Female

DRUGS (1)
  1. MIRENA [Suspect]
     Active Substance: LEVONORGESTREL
     Indication: CONTRACEPTION
     Dosage: 20 MCG/24HR, CONT
     Route: 015
     Dates: start: 20110117, end: 20170629

REACTIONS (23)
  - Haemorrhage [Unknown]
  - Depression [Unknown]
  - Acne [Unknown]
  - Pruritus [Unknown]
  - Loss of libido [Unknown]
  - Migraine [Unknown]
  - Vaginal infection [Unknown]
  - Affect lability [Unknown]
  - Discomfort [Unknown]
  - Vulvitis [Unknown]
  - Hirsutism [Unknown]
  - Alopecia [Unknown]
  - Headache [Unknown]
  - Abdominal pain lower [Unknown]
  - Eczema [Unknown]
  - Weight increased [Unknown]
  - Rash [Unknown]
  - Back pain [Unknown]
  - Visual impairment [Unknown]
  - Nervousness [Unknown]
  - Breast pain [Unknown]
  - Nausea [Unknown]
  - Urticaria [Unknown]

NARRATIVE: CASE EVENT DATE: 20150901
